FAERS Safety Report 5072539-X (Version None)
Quarter: 2006Q3

REPORT INFORMATION
  Report Type: 
  Country: None (occurrence: None)
  Receive Date: 20060807
  Receipt Date: 20060801
  Transmission Date: 20061208
  Serious: Yes (Disabling)
  Sender: FDA-Public Use
  Company Number: US-MERCK-0608USA00417

PATIENT
  Age: 75 Year
  Sex: Male

DRUGS (2)
  1. ZOCOR [Suspect]
     Indication: BLOOD CHOLESTEROL INCREASED
     Route: 048
     Dates: end: 20060501
  2. LOTREL [Concomitant]
     Route: 065

REACTIONS (3)
  - ANOREXIA [None]
  - MUSCULAR WEAKNESS [None]
  - WEIGHT DECREASED [None]
